FAERS Safety Report 16297305 (Version 1)
Quarter: 2019Q2

REPORT INFORMATION
  Report Type: Report from Study
  Country: CZ (occurrence: CZ)
  Receive Date: 20190510
  Receipt Date: 20190510
  Transmission Date: 20190711
  Serious: Yes (Hospitalization, Other)
  Sender: FDA-Public Use
  Company Number: CZ-ROCHE-2309930

PATIENT
  Age: 43 Year
  Sex: Male

DRUGS (37)
  1. PANTOPRAZOLUM [Concomitant]
     Active Substance: PANTOPRAZOLE
  2. CISATRACURIUM. [Concomitant]
     Active Substance: CISATRACURIUM
  3. PARACETAMOLUM [Concomitant]
     Active Substance: ACETAMINOPHEN
  4. CIPROFLOXACIN. [Concomitant]
     Active Substance: CIPROFLOXACIN
  5. AMLODIPINUM [Concomitant]
  6. OXAZEPAM. [Concomitant]
     Active Substance: OXAZEPAM
  7. FUROSEMIDE. [Concomitant]
     Active Substance: FUROSEMIDE
  8. BISOPROLOL [Concomitant]
     Active Substance: BISOPROLOL
  9. NITROFURANTOIN. [Concomitant]
     Active Substance: NITROFURANTOIN
  10. CINACALCET. [Concomitant]
     Active Substance: CINACALCET
  11. MYCOPHENOLATE MOFETIL. [Suspect]
     Active Substance: MYCOPHENOLATE MOFETIL
     Indication: IMMUNOSUPPRESSION
     Route: 065
  12. PROPOFOLUM [Concomitant]
     Active Substance: PROPOFOL
  13. METOCLOPRAMIDE. [Concomitant]
     Active Substance: METOCLOPRAMIDE
  14. LANSOPRAZOL [Concomitant]
     Active Substance: LANSOPRAZOLE
  15. GANCICLOVIRUM [Concomitant]
  16. SMECTA [Concomitant]
     Active Substance: MONTMORILLONITE
  17. PREDNISONE. [Concomitant]
     Active Substance: PREDNISONE
  18. BLINDED QPI-1002 [Suspect]
     Active Substance: TEPRASIRAN
     Indication: DELAYED GRAFT FUNCTION
     Route: 042
     Dates: start: 20170513
  19. DESFLURANE. [Concomitant]
     Active Substance: DESFLURANE
  20. HYDROCORTISONE. [Concomitant]
     Active Substance: HYDROCORTISONE
  21. METAMIZOLUM [Concomitant]
  22. TACROLIMUS. [Concomitant]
     Active Substance: TACROLIMUS
  23. METHYLPREDNISOLONE. [Concomitant]
     Active Substance: METHYLPREDNISOLONE
  24. EPHEDRINE. [Concomitant]
     Active Substance: EPHEDRINE
  25. TRAMADOL. [Concomitant]
     Active Substance: TRAMADOL
  26. BISULEPIN [Concomitant]
     Active Substance: BISULEPIN
  27. NATRIUM [Concomitant]
  28. MYCOPHENOLATE MOFETIL. [Suspect]
     Active Substance: MYCOPHENOLATE MOFETIL
     Route: 065
     Dates: start: 20170816, end: 20170915
  29. SUFENTANILUM [Concomitant]
  30. VALGANCICLOVIR. [Concomitant]
     Active Substance: VALGANCICLOVIR
  31. BISEPTOL [Concomitant]
     Active Substance: SULFAMETHOXAZOLE\TRIMETHOPRIM
  32. ALGIFEN [FENPIVERINIUM BROMIDE;METAMIZOLE SODIUM;PITOFENONE HYDROCHLOR [Concomitant]
  33. DOXAZOSIN [Concomitant]
     Active Substance: DOXAZOSIN\DOXAZOSIN MESYLATE
  34. THYMOGLOBULINE [Concomitant]
     Active Substance: LAPINE T-LYMPHOCYTE IMMUNE GLOBULIN
  35. ACETYLSALICYLIC ACID [Concomitant]
     Active Substance: ASPIRIN
  36. SEVELAMER [Concomitant]
     Active Substance: SEVELAMER
  37. PLASMALYTE [Concomitant]
     Active Substance: ELECTROLYTES NOS

REACTIONS (3)
  - Cytomegalovirus test positive [Recovered/Resolved]
  - Viraemia [Recovered/Resolved]
  - Post procedural urine leak [Recovered/Resolved]

NARRATIVE: CASE EVENT DATE: 20170526
